FAERS Safety Report 9766226 (Version 3)
Quarter: 2014Q3

REPORT INFORMATION
  Report Type: Spontaneous
  Country: US (occurrence: US)
  Receive Date: 20131217
  Receipt Date: 20140714
  Transmission Date: 20150326
  Serious: Yes (Death)
  Sender: FDA-Public Use
  Company Number: US-GLAXOSMITHKLINE-A1023125A

PATIENT
  Age: 63 Year
  Sex: Female

DRUGS (1)
  1. VOTRIENT [Suspect]
     Active Substance: PAZOPANIB HYDROCHLORIDE
     Indication: OVARIAN CANCER
     Dosage: 800MG PER DAY
     Route: 048
     Dates: start: 20130404

REACTIONS (6)
  - Vaginal haemorrhage [Unknown]
  - Death [Fatal]
  - General physical health deterioration [Unknown]
  - Renal artery stent placement [Unknown]
  - Adverse event [Fatal]
  - Alopecia [Unknown]

NARRATIVE: CASE EVENT DATE: 20130425
